FAERS Safety Report 9037306 (Version 2)
Quarter: 2013Q1

REPORT INFORMATION
  Report Type: Spontaneous
  Country: US (occurrence: US)
  Receive Date: 20130129
  Receipt Date: 20130225
  Transmission Date: 20140127
  Serious: No
  Sender: FDA-Public Use
  Company Number: US-BIOGENIDEC-2013BI004569

PATIENT
  Sex: Female

DRUGS (5)
  1. TYSABRI [Suspect]
     Indication: MULTIPLE SCLEROSIS
     Route: 042
     Dates: start: 20110830
  2. CLONAZEPAM [Concomitant]
     Indication: MUSCLE SPASTICITY
     Route: 048
  3. PRISTIQ [Concomitant]
     Indication: DEPRESSION
     Route: 048
  4. HYDROCODONE [Concomitant]
     Indication: MUSCLE SPASTICITY
     Dates: start: 2012, end: 2012
  5. AMITRYTILINE [Concomitant]
     Indication: MIGRAINE
     Route: 048

REACTIONS (2)
  - Fatigue [Recovered/Resolved]
  - Muscle spasticity [Recovered/Resolved]
